FAERS Safety Report 4422700-X (Version None)
Quarter: 2004Q3

REPORT INFORMATION
  Report Type: 
  Country: None (occurrence: None)
  Receive Date: 20040713
  Receipt Date: 20040621
  Transmission Date: 20050211
  Serious: No
  Sender: FDA-Public Use
  Company Number: PHEH2004US05877

PATIENT
  Age: 70 Year
  Sex: Male
  Weight: 81.6 kg

DRUGS (22)
  1. ELIDEL [Suspect]
     Indication: ECZEMA
     Dosage: BID, TOPICAL
     Route: 061
     Dates: start: 20031116, end: 20040120
  2. TOPICORT [Suspect]
     Dosage: BID, TOPICAL
     Route: 061
     Dates: start: 20031111
  3. METOPROLOL [Concomitant]
  4. FLOMAX (TAMULOSIN HYDROCHLORIDE) [Concomitant]
  5. ALTACE [Concomitant]
  6. ALLOPURINOL [Concomitant]
  7. ZOCOR [Concomitant]
  8. PROSCAR [Concomitant]
  9. ECOTRIN [Concomitant]
  10. NIASPAN [Concomitant]
  11. NEXIUM [Concomitant]
  12. HYDROCHLOROTHIAZIDE [Concomitant]
  13. EPA (OMEGA-3 TRIGLYCERIDES) [Concomitant]
  14. SELENIUM (SELENIUM) [Concomitant]
  15. ACETYLCYSTEINE [Concomitant]
  16. BETACAROTENE (BETACAROTENE) [Concomitant]
  17. ZINC (ZINC) [Concomitant]
  18. COPPER (COPPER) [Concomitant]
  19. VITAMIN A [Concomitant]
  20. VITAMIN D [Concomitant]
  21. GLUCOSAMINE SULFATE W/CHONDROITIN (GLUCOSAMINE SULFATE, CHONDROITIN SU [Concomitant]
  22. VITAMIN B COMPLEX CAP [Concomitant]

REACTIONS (2)
  - HERPES ZOSTER [None]
  - NEURALGIA [None]
